FAERS Safety Report 12389943 (Version 1)
Quarter: 2016Q2

REPORT INFORMATION
  Report Type: Spontaneous
  Country: JP (occurrence: JP)
  Receive Date: 20160520
  Receipt Date: 20160520
  Transmission Date: 20160815
  Serious: Yes (Other)
  Sender: FDA-Public Use
  Company Number: JP-BAYER-2016-060882

PATIENT
  Age: 41 Year
  Sex: Female
  Weight: 54 kg

DRUGS (6)
  1. MIRENA [Suspect]
     Active Substance: LEVONORGESTREL
     Indication: DYSMENORRHOEA
     Dosage: UNK
     Route: 015
     Dates: start: 20150220
  2. LOXONIN [Concomitant]
     Active Substance: LOXOPROFEN SODIUM
     Indication: BACK PAIN
  3. MAGMITT [Concomitant]
     Active Substance: MAGNESIUM OXIDE
     Indication: ABDOMINAL PAIN LOWER
     Dosage: 330 MG, PRN
     Route: 048
     Dates: start: 20150515
  4. LOXONIN [Concomitant]
     Active Substance: LOXOPROFEN SODIUM
     Indication: DYSMENORRHOEA
     Dosage: DAILY DOSE 120 MG
     Route: 048
     Dates: start: 20150320
  5. IBUPROFEN PICONOL [Concomitant]
     Active Substance: IBUPROFEN PICONOL
     Indication: VULVOVAGINAL PRURITUS
     Dosage: UNK
     Route: 061
     Dates: start: 20160205
  6. LOXONIN [Concomitant]
     Active Substance: LOXOPROFEN SODIUM
     Indication: ABDOMINAL PAIN LOWER

REACTIONS (3)
  - Endometrial dysplasia [Unknown]
  - Metrorrhagia [None]
  - Menorrhagia [None]

NARRATIVE: CASE EVENT DATE: 20160205
